FAERS Safety Report 4701310-0 (Version None)
Quarter: 2005Q2

REPORT INFORMATION
  Report Type: 
  Country: None (occurrence: None)
  Receive Date: 20050628
  Receipt Date: 20050329
  Transmission Date: 20051028
  Serious: Yes (Disabling)
  Sender: FDA-Public Use
  Company Number: PHBS2005ES04445

PATIENT
  Age: 10 Year
  Sex: Male

DRUGS (2)
  1. TRILEPTAL [Suspect]
     Indication: ABNORMAL BEHAVIOUR
     Dosage: 600 MG/D
     Route: 048
     Dates: start: 20050228, end: 20050326
  2. RISPERDAL [Concomitant]
     Dosage: 2.5 ML/D
     Route: 065

REACTIONS (3)
  - ABDOMINAL RIGIDITY [None]
  - FACIAL SPASM [None]
  - MUSCLE SPASMS [None]
